FAERS Safety Report 8230761-5 (Version None)
Quarter: 2012Q1

REPORT INFORMATION
  Report Type: 
  Country: None (occurrence: None)
  Receive Date: 20120323
  Receipt Date: 20120319
  Transmission Date: 20120608
  Serious: No
  Sender: FDA-Public Use
  Company Number: US-BAYER-2012-028145

PATIENT
  Age: 81 Year
  Sex: Female
  Weight: 66 kg

DRUGS (3)
  1. UNKNOWN ANXIETY MEDICATION [Concomitant]
  2. ALEVE (CAPLET) [Suspect]
     Indication: BACK PAIN
     Dosage: 2 DF, QD
     Route: 048
     Dates: start: 20060101
  3. SLEEPING PILL [Concomitant]

REACTIONS (1)
  - NO ADVERSE EVENT [None]
